FAERS Safety Report 5679899-7 (Version None)
Quarter: 2008Q1

REPORT INFORMATION
  Report Type: 
  Country: None (occurrence: None)
  Receive Date: 20080324
  Receipt Date: 20080314
  Transmission Date: 20080703
  Serious: Yes (Other)
  Sender: FDA-Public Use
  Company Number: 056-21880-08020865

PATIENT
  Age: 51 Year
  Sex: Female

DRUGS (2)
  1. CC-5013 (LENALIDOMIDE) (CAPSULES) [Suspect]
     Indication: MYELODYSPLASTIC SYNDROME
     Dosage: 5 MG, DAILY, ORAL, 10 MG, DAILY X3 WEEKS EVERY MONTH, ORAL
     Route: 048
     Dates: start: 20060101, end: 20060928
  2. CC-5013 (LENALIDOMIDE) (CAPSULES) [Suspect]
     Indication: MYELODYSPLASTIC SYNDROME
     Dosage: 5 MG, DAILY, ORAL, 10 MG, DAILY X3 WEEKS EVERY MONTH, ORAL
     Route: 048
     Dates: start: 20060201

REACTIONS (10)
  - 5Q-SYNDROME [None]
  - ANAEMIA [None]
  - ANAEMIA MEGALOBLASTIC [None]
  - CYTOGENETIC ABNORMALITY [None]
  - GRANULOCYTE COUNT DECREASED [None]
  - LUNG INFECTION [None]
  - MARROW HYPERPLASIA [None]
  - MEGAKARYOCYTES ABNORMAL [None]
  - NEUTROPENIA [None]
  - NO THERAPEUTIC RESPONSE [None]
